FAERS Safety Report 14202300 (Version 1)
Quarter: 2017Q4

REPORT INFORMATION
  Report Type: Spontaneous
  Country: US (occurrence: US)
  Receive Date: 20171117
  Receipt Date: 20171117
  Transmission Date: 20180321
  Serious: No
  Sender: FDA-Public Use
  Company Number: US-009507513-1711USA007642

PATIENT
  Age: 30 Year
  Sex: Female

DRUGS (6)
  1. TRUSOPT [Suspect]
     Active Substance: DORZOLAMIDE HYDROCHLORIDE
     Indication: MACULAR CYST
  2. PREDNISONE. [Concomitant]
     Active Substance: PREDNISONE
     Indication: MACULOPATHY
     Dosage: 10 MG, QD
     Route: 048
  3. IMURAN [Concomitant]
     Active Substance: AZATHIOPRINE
     Indication: MACULAR CYST
  4. TRUSOPT [Suspect]
     Active Substance: DORZOLAMIDE HYDROCHLORIDE
     Indication: MACULOPATHY
     Dosage: TID (OU)
     Route: 047
  5. IMURAN [Concomitant]
     Active Substance: AZATHIOPRINE
     Indication: MACULOPATHY
     Dosage: 50 MG, BID
  6. PREDNISONE. [Concomitant]
     Active Substance: PREDNISONE
     Indication: MACULAR CYST

REACTIONS (1)
  - Product use in unapproved indication [Unknown]
